FAERS Safety Report 16790731 (Version 1)
Quarter: 2019Q3

REPORT INFORMATION
  Report Type: Spontaneous
  Country: US (occurrence: US)
  Receive Date: 20190719
  Receipt Date: 20190719
  Transmission Date: 20191005
  Serious: No
  Sender: FDA-Public Use
  Company Number: None

PATIENT
  Age: 14 Month
  Sex: Female

DRUGS (1)
  1. ZARXIO [Suspect]
     Active Substance: FILGRASTIM-SNDZ
     Dosage: ?          OTHER STRENGTH:300MCG/0.5ML;?
     Dates: start: 201903

REACTIONS (2)
  - Product dose omission [None]
  - Treatment noncompliance [None]

NARRATIVE: CASE EVENT DATE: 20190719
